FAERS Safety Report 4997140-5 (Version None)
Quarter: 2006Q2

REPORT INFORMATION
  Report Type: 
  Country: None (occurrence: None)
  Receive Date: 20060508
  Receipt Date: 20060508
  Transmission Date: 20061013
  Serious: No
  Sender: FDA-Public Use
  Company Number: None

PATIENT
  Age: 58 Year
  Sex: Female
  Weight: 82.5547 kg

DRUGS (6)
  1. FLEET PHOSPHO-SODA 1.5 OZ FLEET LABORATORIES [Suspect]
     Indication: COLONOSCOPY
     Dosage: SEE IMAGE
     Route: 048
     Dates: start: 20050714, end: 20050714
  2. FLEET PHOSPHO-SODA 1.5 OZ FLEET LABORATORIES [Suspect]
     Indication: COLORECTAL CANCER
     Dosage: SEE IMAGE
     Route: 048
     Dates: start: 20050714, end: 20050714
  3. FLEET PHOSPHO-SODA 1.5 OZ FLEET LABORATORIES [Suspect]
     Indication: SURGERY
     Dosage: SEE IMAGE
     Route: 048
     Dates: start: 20050714, end: 20050714
  4. FLEET PHOSPHO-SODA 1.5 OZ FLEET LABORATORIES [Suspect]
     Indication: COLONOSCOPY
     Dosage: SEE IMAGE
     Route: 048
     Dates: start: 20050809, end: 20050810
  5. FLEET PHOSPHO-SODA 1.5 OZ FLEET LABORATORIES [Suspect]
     Indication: COLORECTAL CANCER
     Dosage: SEE IMAGE
     Route: 048
     Dates: start: 20050809, end: 20050810
  6. FLEET PHOSPHO-SODA 1.5 OZ FLEET LABORATORIES [Suspect]
     Indication: SURGERY
     Dosage: SEE IMAGE
     Route: 048
     Dates: start: 20050809, end: 20050810

REACTIONS (4)
  - ANAEMIA [None]
  - DEHYDRATION [None]
  - RENAL DISORDER [None]
  - RENAL FAILURE ACUTE [None]
